FAERS Safety Report 4305277-9 (Version None)
Quarter: 2004Q1

REPORT INFORMATION
  Report Type: 
  Country: None (occurrence: None)
  Receive Date: 20040226
  Receipt Date: 20030130
  Transmission Date: 20041129
  Serious: No
  Sender: FDA-Public Use
  Company Number: US-BRISTOL-MYERS SQUIBB COMPANY-12172516

PATIENT
  Age: 66 Year
  Sex: Female
  Weight: 54 kg

DRUGS (6)
  1. TAXOL [Suspect]
     Indication: ANGIOSARCOMA
     Dosage: REPORTED DOSE OF 156 MG/100 ML ^TO BE REDUCED TO 130MG/80 ML^
     Route: 042
  2. OMEPRAZOLE [Concomitant]
  3. ZOFRAN [Concomitant]
     Indication: PREMEDICATION
  4. DECADRON [Concomitant]
     Indication: PREMEDICATION
  5. BENADRYL [Concomitant]
     Indication: PREMEDICATION
  6. CIMETIDINE HCL [Concomitant]
     Indication: PREMEDICATION

REACTIONS (3)
  - OEDEMA PERIPHERAL [None]
  - RASH ERYTHEMATOUS [None]
  - SKIN DISCOLOURATION [None]
